FAERS Safety Report 20636061 (Version 1)
Quarter: 2022Q1

REPORT INFORMATION
  Report Type: Spontaneous
  Country: GR (occurrence: GR)
  Receive Date: 20220325
  Receipt Date: 20220325
  Transmission Date: 20220423
  Serious: Yes (Hospitalization, Disabling, Other)
  Sender: FDA-Public Use
  Company Number: GR-NOVARTISPH-NVSC2019GR071064

PATIENT
  Sex: Male

DRUGS (7)
  1. BUDESONIDE [Interacting]
     Active Substance: BUDESONIDE
     Indication: Cough
     Dosage: UNK
     Route: 055
  2. BUDESONIDE [Interacting]
     Active Substance: BUDESONIDE
     Indication: Dyspnoea
  3. BUDESONIDE [Interacting]
     Active Substance: BUDESONIDE
     Indication: Emphysema
  4. EMTRICITABINE\TENOFOVIR DISOPROXIL FUMARATE [Suspect]
     Active Substance: EMTRICITABINE\TENOFOVIR DISOPROXIL FUMARATE
     Indication: HIV infection CDC category C
     Dosage: UNK
     Route: 065
  5. DARUNAVIR [Interacting]
     Active Substance: DARUNAVIR
     Indication: HIV infection CDC category C
     Dosage: UNK
     Route: 048
  6. NORVIR [Interacting]
     Active Substance: RITONAVIR
     Indication: HIV infection CDC category C
     Dosage: UNK
     Route: 048
  7. HYDROCORTISONE [Concomitant]
     Active Substance: HYDROCORTISONE
     Indication: Antiretroviral therapy
     Dosage: UNK
     Route: 065

REACTIONS (12)
  - Cushing^s syndrome [Recovered/Resolved]
  - Clubbing [Unknown]
  - Oedema [Unknown]
  - Hyperglycaemia [Unknown]
  - Adrenal insufficiency [Recovered/Resolved]
  - Drug interaction [Unknown]
  - Resting tremor [Unknown]
  - Muscular weakness [Recovering/Resolving]
  - Palmar erythema [Unknown]
  - Gait disturbance [Unknown]
  - Glycosuria [Unknown]
  - Off label use [Unknown]
